FAERS Safety Report 7222306-3 (Version None)
Quarter: 2011Q1

REPORT INFORMATION
  Report Type: 
  Country: None (occurrence: None)
  Receive Date: 20110112
  Receipt Date: 20110104
  Transmission Date: 20110831
  Serious: Yes (Hospitalization, Disabling, Other)
  Sender: FDA-Public Use
  Company Number: US-JNJFOC-20101001855

PATIENT
  Sex: Male
  Weight: 54.6 kg

DRUGS (5)
  1. MESALAMINE [Concomitant]
     Indication: COLITIS ULCERATIVE
  2. CORTICOSTEROIDS [Concomitant]
     Indication: COLITIS ULCERATIVE
     Route: 042
  3. MERCAPTOPURINE [Concomitant]
     Indication: COLITIS ULCERATIVE
  4. CORTICOSTEROIDS [Concomitant]
  5. REMICADE [Suspect]
     Indication: COLITIS ULCERATIVE
     Route: 042

REACTIONS (3)
  - INTRACRANIAL VENOUS SINUS THROMBOSIS [None]
  - HEMIPARESIS [None]
  - CEREBRAL INFARCTION [None]
